FAERS Safety Report 5015490-3 (Version None)
Quarter: 2006Q2

REPORT INFORMATION
  Report Type: 
  Country: None (occurrence: None)
  Receive Date: 20060530
  Receipt Date: 20060530
  Transmission Date: 20061013
  Serious: Yes (Hospitalization)
  Sender: FDA-Public Use
  Company Number: None

PATIENT
  Age: 45 Year
  Sex: Male
  Weight: 100.2449 kg

DRUGS (1)
  1. NAFCILLIN SODIUM [Suspect]
     Dosage: 12 GM CONTINOUS INFUSION
     Dates: start: 20060321, end: 20060427

REACTIONS (2)
  - DEHYDRATION [None]
  - DIARRHOEA [None]
